FAERS Safety Report 22366169 (Version 1)
Quarter: 2023Q2

REPORT INFORMATION
  Report Type: Spontaneous
  Country: US (occurrence: None)
  Receive Date: 20230524
  Receipt Date: 20230524
  Transmission Date: 20230722
  Serious: No
  Sender: FDA-Public Use
  Company Number: None

PATIENT
  Sex: Female

DRUGS (10)
  1. CAPECITABINE [Suspect]
     Active Substance: CAPECITABINE
     Indication: Malignant peritoneal neoplasm
     Dosage: 4T AM 3T PM QD PO  14D ON/ 7D OFF?
     Route: 050
     Dates: start: 202303, end: 202305
  2. FELODIPINE [Concomitant]
     Active Substance: FELODIPINE
  3. KLOR-CON [Concomitant]
     Active Substance: POTASSIUM CHLORIDE
  4. OMEPRAZOLE [Concomitant]
     Active Substance: OMEPRAZOLE
  5. COLLAGEN ULTRA [Concomitant]
  6. BORON ORAL [Concomitant]
  7. NEURIVA BRAIN HEALTH [Concomitant]
  8. NERVIVE [Concomitant]
  9. TYLENOL [Concomitant]
     Active Substance: ACETAMINOPHEN
  10. ROBITUSSIN (GUAIFENESIN) [Concomitant]
     Active Substance: GUAIFENESIN

REACTIONS (2)
  - Therapy cessation [None]
  - Disease progression [None]
